APPROVED DRUG PRODUCT: PLERIXAFOR
Active Ingredient: PLERIXAFOR
Strength: 24MG/1.2ML (20MG/ML)
Dosage Form/Route: SOLUTION;SUBCUTANEOUS
Application: A217560 | Product #001 | TE Code: AP
Applicant: HETERO LABS LTD UNIT VI
Approved: Jun 16, 2025 | RLD: No | RS: No | Type: RX